FAERS Safety Report 20382422 (Version 1)
Quarter: 2022Q1

REPORT INFORMATION
  Report Type: Spontaneous
  Country: BR (occurrence: BR)
  Receive Date: 20220127
  Receipt Date: 20220127
  Transmission Date: 20220423
  Serious: Yes (Other)
  Sender: FDA-Public Use
  Company Number: ALC2022BR000602

PATIENT
  Age: 85 Year
  Sex: Female

DRUGS (1)
  1. SIMBRINZA [Suspect]
     Active Substance: BRIMONIDINE TARTRATE\BRINZOLAMIDE
     Indication: Glaucoma
     Dosage: 10 MG/ML
     Route: 065

REACTIONS (3)
  - Blindness [Unknown]
  - Drug ineffective [Unknown]
  - Eye irritation [Unknown]
